FAERS Safety Report 10429515 (Version 2)
Quarter: 2014Q4

REPORT INFORMATION
  Report Type: Report from Study
  Country: US (occurrence: US)
  Receive Date: 20140904
  Receipt Date: 20141002
  Transmission Date: 20150528
  Serious: Yes (Life-Threatening, Hospitalization)
  Sender: FDA-Public Use
  Company Number: US-MYLAN-2014M1003338

PATIENT
  Age: 72 Year
  Sex: Female
  Weight: 53.9 kg

DRUGS (5)
  1. MELOXICAM. [Concomitant]
     Active Substance: MELOXICAM
     Indication: PAIN IN EXTREMITY
     Dosage: 15 MG, QD
     Route: 048
     Dates: start: 20140715
  2. ALPRAZOLAM. [Concomitant]
     Active Substance: ALPRAZOLAM
     Indication: ANXIETY
     Dosage: 0.5 MG, PRN
     Route: 048
     Dates: start: 20110223
  3. TEMAZEPAM. [Concomitant]
     Active Substance: TEMAZEPAM
     Indication: INSOMNIA
     Dosage: 15 MG, PRN
     Route: 048
     Dates: start: 20140331
  4. FORMOTEROL FUMARATE SOLUTION (FOR NEBULISATION) [Suspect]
     Active Substance: FORMOTEROL FUMARATE
     Indication: CHRONIC OBSTRUCTIVE PULMONARY DISEASE
     Dosage: 20 ?G, BID
     Route: 055
     Dates: start: 20140604, end: 20140814
  5. ALBUTEROL HFA [Concomitant]
     Active Substance: ALBUTEROL SULFATE
     Indication: CHRONIC OBSTRUCTIVE PULMONARY DISEASE
     Dosage: 90 ?G, UNK
     Route: 055

REACTIONS (4)
  - Chronic obstructive pulmonary disease [Recovered/Resolved]
  - Pyelonephritis [Recovered/Resolved]
  - Deep vein thrombosis [Not Recovered/Not Resolved]
  - Sepsis [Recovered/Resolved]

NARRATIVE: CASE EVENT DATE: 20140814
